FAERS Safety Report 7678868-5 (Version None)
Quarter: 2011Q3

REPORT INFORMATION
  Report Type: 
  Country: None (occurrence: None)
  Receive Date: 20110812
  Receipt Date: 20110803
  Transmission Date: 20111222
  Serious: No
  Sender: FDA-Public Use
  Company Number: US-BIOGENIDEC-2011BI017903

PATIENT
  Sex: Male

DRUGS (12)
  1. TYSABRI [Suspect]
     Indication: MULTIPLE SCLEROSIS
     Route: 042
     Dates: start: 20080502
  2. LIPITOR [Concomitant]
  3. VITAMIN B COMPLEX CAP [Concomitant]
  4. PROZAC [Concomitant]
  5. RANITIDINE [Concomitant]
  6. LUNESTA [Concomitant]
  7. TRIHEXYPHENIDYL [Concomitant]
  8. AMANTADINE HCL [Concomitant]
  9. SEROQUEL [Concomitant]
  10. ASPIRIN [Concomitant]
  11. BACLOFEN [Concomitant]
  12. BACLOFEN [Concomitant]

REACTIONS (1)
  - MULTIPLE SCLEROSIS [None]
